FAERS Safety Report 11106917 (Version 1)
Quarter: 2015Q2

REPORT INFORMATION
  Report Type: Spontaneous
  Country: US (occurrence: US)
  Receive Date: 20150512
  Receipt Date: 20150512
  Transmission Date: 20150821
  Serious: No
  Sender: FDA-Public Use
  Company Number: US-LEO PHARMA-233826

PATIENT
  Age: 86 Year
  Sex: Female

DRUGS (1)
  1. DAIVOBET [Suspect]
     Active Substance: BETAMETHASONE DIPROPIONATE\CALCIPOTRIENE
     Indication: PSORIASIS
     Route: 061
     Dates: start: 201412

REACTIONS (5)
  - Inappropriate schedule of drug administration [Unknown]
  - Scab [Unknown]
  - Skin exfoliation [Unknown]
  - Erythema [Unknown]
  - Drug administered at inappropriate site [Unknown]
